FAERS Safety Report 7833200-9 (Version None)
Quarter: 2011Q4

REPORT INFORMATION
  Report Type: 
  Country: None (occurrence: None)
  Receive Date: 20111024
  Receipt Date: 20111016
  Transmission Date: 20120403
  Serious: Yes (Hospitalization)
  Sender: FDA-Public Use
  Company Number: US-JNJFOC-20111007224

PATIENT
  Sex: Female

DRUGS (2)
  1. DOXORUBICIN HCL [Suspect]
     Indication: PRODUCT USED FOR UNKNOWN INDICATION
     Route: 042
  2. CHEMOTHERAPY [Suspect]
     Indication: NEOPLASM PROPHYLAXIS
     Route: 042
     Dates: start: 20111010, end: 20111010

REACTIONS (5)
  - DRUG INEFFECTIVE [None]
  - PAIN [None]
  - DEHYDRATION [None]
  - VOMITING [None]
  - HYPERSENSITIVITY [None]
